FAERS Safety Report 4431324-X (Version None)
Quarter: 2004Q3

REPORT INFORMATION
  Report Type: 
  Country: None (occurrence: None)
  Receive Date: 20040818
  Receipt Date: 20040816
  Transmission Date: 20050211
  Serious: Yes (Other)
  Sender: FDA-Public Use
  Company Number: 139659USA

PATIENT
  Age: 52 Year
  Sex: Female
  Weight: 54.4316 kg

DRUGS (5)
  1. COPAXONE [Suspect]
     Indication: MULTIPLE SCLEROSIS
     Dates: end: 20040801
  2. NASACORT [Concomitant]
  3. ALBUTEROL [Concomitant]
  4. ESTRACE [Concomitant]
  5. ZYRTEC [Concomitant]

REACTIONS (14)
  - CELLULITIS [None]
  - CONTUSION [None]
  - IMPAIRED HEALING [None]
  - INJECTION SITE BURNING [None]
  - INJECTION SITE DISCOLOURATION [None]
  - INJECTION SITE ERYTHEMA [None]
  - INJECTION SITE ULCER [None]
  - PALLOR [None]
  - SCAB [None]
  - SCAR [None]
  - SENSORY LOSS [None]
  - SKIN NECROSIS [None]
  - THERMAL BURN [None]
  - WOUND [None]
